FAERS Safety Report 17494735 (Version 1)
Quarter: 2020Q1

REPORT INFORMATION
  Report Type: Spontaneous
  Country: US (occurrence: US)
  Receive Date: 20200303
  Receipt Date: 20200303
  Transmission Date: 20200409
  Serious: Yes (Hospitalization)
  Sender: FDA-Public Use
  Company Number: None

PATIENT
  Age: 66 Year
  Sex: Female

DRUGS (15)
  1. SILDENAFIL. [Suspect]
     Active Substance: SILDENAFIL
     Route: 048
     Dates: start: 20180508
  2. ESOMEPRAZOLE. [Concomitant]
     Active Substance: ESOMEPRAZOLE MAGNESIUM
  3. MUPIROCIN. [Concomitant]
     Active Substance: MUPIROCIN
  4. OSELTAMIVIR [Concomitant]
     Active Substance: OSELTAMIVIR
  5. METOPROLOL TARTRATE. [Concomitant]
     Active Substance: METOPROLOL TARTRATE
  6. MONTELUKAST [Concomitant]
     Active Substance: MONTELUKAST SODIUM
  7. COLESEVELAM [Concomitant]
     Active Substance: COLESEVELAM
  8. FURSOMIDE [Concomitant]
  9. AMLODIPINE [Concomitant]
     Active Substance: AMLODIPINE BESYLATE
  10. ELIQUIS [Concomitant]
     Active Substance: APIXABAN
  11. BUPROPN [Concomitant]
  12. FOLIC ACID. [Concomitant]
     Active Substance: FOLIC ACID
  13. LEVO [Concomitant]
     Active Substance: LEVOBUPIVACAINE
  14. CHOLESTYRAM [Concomitant]
     Active Substance: CHOLESTYRAMINE
  15. GABAPENTIN. [Concomitant]
     Active Substance: GABAPENTIN

REACTIONS (1)
  - Renal disorder [None]

NARRATIVE: CASE EVENT DATE: 20200227
